FAERS Safety Report 9813602 (Version 6)
Quarter: 2015Q4

REPORT INFORMATION
  Report Type: Report from Study
  Country: JP (occurrence: JP)
  Receive Date: 20140113
  Receipt Date: 20151006
  Transmission Date: 20160305
  Serious: Yes (Hospitalization)
  Sender: FDA-Public Use
  Company Number: JP-ASTRAZENECA-2012SE92439

PATIENT
  Age: 75 Year
  Sex: Male

DRUGS (84)
  1. NEXIUM [Suspect]
     Active Substance: ESOMEPRAZOLE MAGNESIUM
     Indication: DUODENAL ULCER
     Route: 048
     Dates: start: 20131203, end: 20131214
  2. BASEN [Suspect]
     Active Substance: VOGLIBOSE
     Indication: DIABETES MELLITUS
     Route: 048
     Dates: start: 20131205, end: 20131209
  3. REBAMIPIDE [Suspect]
     Active Substance: REBAMIPIDE
     Route: 048
     Dates: start: 20140116, end: 20140129
  4. MAGLAX [Suspect]
     Active Substance: MAGNESIUM OXIDE
     Route: 048
     Dates: start: 20131212, end: 20140129
  5. AMLODIN [Concomitant]
     Active Substance: AMLODIPINE BESYLATE
     Indication: HYPERTENSION
     Dates: start: 2002
  6. GASPORT [Concomitant]
     Active Substance: FAMOTIDINE
     Route: 048
     Dates: start: 201102
  7. GLYCEOL [Concomitant]
     Active Substance: GLYCERIN
     Dates: start: 20131202, end: 20131202
  8. ACTIT [Concomitant]
     Dates: start: 20150725, end: 20150725
  9. CRAVIT [Concomitant]
     Active Substance: LEVOFLOXACIN
     Route: 047
     Dates: start: 20131208, end: 201402
  10. SULBACILLIN [Concomitant]
     Active Substance: AMPICILLIN SODIUM\SULBACTAM SODIUM
     Dates: start: 20150724, end: 20150724
  11. NOVOLIN R [Concomitant]
     Active Substance: INSULIN HUMAN
     Dates: start: 20131219, end: 20131225
  12. LECICARBON [Concomitant]
     Active Substance: SODIUM BICARBONATE\SODIUM PHOSPHATE, MONOBASIC
     Route: 054
     Dates: start: 20131208, end: 20131217
  13. KENEI G ENEMA [Concomitant]
     Route: 054
     Dates: start: 20131211, end: 20131211
  14. GLIMICRON [Suspect]
     Active Substance: GLICLAZIDE
     Indication: DIABETES MELLITUS
     Route: 048
     Dates: start: 20131205, end: 20131209
  15. PINDOLOL. [Suspect]
     Active Substance: PINDOLOL
     Indication: HYPERTENSION
     Route: 065
  16. ALLOZYM [Suspect]
     Active Substance: ALLOPURINOL
     Route: 048
     Dates: start: 20131221, end: 20140313
  17. AMARYL [Suspect]
     Active Substance: GLIMEPIRIDE
     Indication: DIABETES MELLITUS
     Route: 065
     Dates: start: 20140109
  18. RADICUT [Concomitant]
     Active Substance: EDARAVONE
     Route: 041
     Dates: start: 20131202, end: 20131204
  19. PURSENNID [Concomitant]
     Active Substance: SENNOSIDES A AND B
     Route: 048
     Dates: start: 20131220
  20. KENEI G ENEMA [Concomitant]
     Route: 054
     Dates: start: 20131220, end: 20131220
  21. NESINA [Suspect]
     Active Substance: ALOGLIPTIN BENZOATE
     Indication: DIABETES MELLITUS
     Route: 048
     Dates: start: 20130118, end: 20130321
  22. METHYLDOPA. [Suspect]
     Active Substance: METHYLDOPA
     Indication: HYPERTENSION
     Route: 065
  23. TANATRIL [Suspect]
     Active Substance: IMIDAPRIL
     Indication: HYPERTENSION
     Route: 048
     Dates: start: 20131207
  24. TRAZENTA [Suspect]
     Active Substance: LINAGLIPTIN
     Indication: DIABETES MELLITUS
     Route: 065
     Dates: start: 20131211, end: 20131226
  25. CERCINE [Concomitant]
     Active Substance: DIAZEPAM
     Route: 065
     Dates: start: 20150724, end: 20150724
  26. BFLUID [Concomitant]
     Active Substance: AMINO ACIDS\DEXTROSE\ELECTROLYTES NOS\VITAMINS
     Route: 065
     Dates: start: 20150726, end: 20150727
  27. ACTIT [Concomitant]
     Dates: start: 20131202, end: 20131204
  28. LOXONIN [Concomitant]
     Active Substance: LOXOPROFEN SODIUM
     Route: 048
     Dates: start: 20131207, end: 20131217
  29. LAMISIL [Concomitant]
     Active Substance: TERBINAFINE HYDROCHLORIDE
     Route: 062
     Dates: start: 20140106, end: 201402
  30. SULBACILLIN [Concomitant]
     Active Substance: AMPICILLIN SODIUM\SULBACTAM SODIUM
     Dates: start: 20140203, end: 20140203
  31. PENTAGIN [Concomitant]
     Active Substance: PENTAZOCINE HYDROCHLORIDE
     Dates: start: 20140204, end: 20140204
  32. LANTUS [Concomitant]
     Active Substance: INSULIN GLARGINE
     Indication: DIABETES MELLITUS
     Dates: start: 20131209, end: 20140108
  33. NEXIUM [Suspect]
     Active Substance: ESOMEPRAZOLE MAGNESIUM
     Indication: DUODENAL ULCER
     Route: 048
     Dates: start: 20131227
  34. MAGLAX [Suspect]
     Active Substance: MAGNESIUM OXIDE
     Route: 048
     Dates: start: 20140130, end: 20140202
  35. HUMULIN R [Concomitant]
     Active Substance: INSULIN HUMAN
     Dates: start: 20140205, end: 20140209
  36. KENACORT-A [Concomitant]
     Active Substance: TRIAMCINOLONE
     Route: 014
     Dates: start: 20130308, end: 20130308
  37. GLYCEOL [Concomitant]
     Active Substance: GLYCERIN
     Dates: start: 20131201, end: 20131201
  38. ISOTONIC SODIUM CHLORIDE SOLUTION [Concomitant]
     Active Substance: SODIUM CHLORIDE
     Dates: start: 20131201, end: 20131201
  39. ACTIT [Concomitant]
     Dates: start: 20150724, end: 20150724
  40. SOLYUGEN F [Concomitant]
     Dates: start: 20140203, end: 20140203
  41. SOLYUGEN F [Concomitant]
     Dates: start: 20140203, end: 20140203
  42. SOLDEM 3A [Concomitant]
     Active Substance: CARBOHYDRATES\POTASSIUM CHLORIDE\SODIUM CHLORIDE\SODIUM LACTATE
     Dates: start: 20140303, end: 20140303
  43. SOLDEM 3A [Concomitant]
     Active Substance: CARBOHYDRATES\POTASSIUM CHLORIDE\SODIUM CHLORIDE\SODIUM LACTATE
     Dates: start: 20150728, end: 20150728
  44. BAYASPIRIN [Suspect]
     Active Substance: ASPIRIN
     Route: 048
     Dates: start: 20131201, end: 20131201
  45. BAYASPIRIN [Suspect]
     Active Substance: ASPIRIN
     Route: 048
     Dates: start: 20131202
  46. BASEN [Suspect]
     Active Substance: VOGLIBOSE
     Indication: DIABETES MELLITUS
     Route: 048
     Dates: start: 20101217, end: 20131220
  47. REBAMIPIDE [Suspect]
     Active Substance: REBAMIPIDE
     Route: 048
     Dates: start: 20131227, end: 20140115
  48. ALLOPURINOL. [Suspect]
     Active Substance: ALLOPURINOL
     Indication: HYPERTENSION
     Route: 048
     Dates: start: 20140314
  49. PHENOBAL [Concomitant]
     Active Substance: PHENOBARBITAL
     Route: 065
     Dates: start: 20150724, end: 20150725
  50. HUMULIN R [Concomitant]
     Active Substance: INSULIN HUMAN
     Dates: start: 20131203, end: 20140224
  51. LIVOSTIN [Concomitant]
     Active Substance: LEVOCABASTINE HYDROCHLORIDE
     Route: 047
     Dates: start: 20120214, end: 20131201
  52. VASOLAN [Concomitant]
     Active Substance: VERAPAMIL HYDROCHLORIDE
     Dates: start: 20131213, end: 20131213
  53. LAMISIL [Concomitant]
     Active Substance: TERBINAFINE HYDROCHLORIDE
     Route: 062
     Dates: start: 20140106, end: 201402
  54. SOLDEM 3A [Concomitant]
     Active Substance: CARBOHYDRATES\POTASSIUM CHLORIDE\SODIUM CHLORIDE\SODIUM LACTATE
     Dates: start: 20140204, end: 20140204
  55. LECICARBON [Concomitant]
     Active Substance: SODIUM BICARBONATE\SODIUM PHOSPHATE, MONOBASIC
     Route: 054
     Dates: start: 20131220, end: 20131220
  56. DEPAKENE [Concomitant]
     Active Substance: VALPROIC ACID
     Route: 048
     Dates: start: 20150724, end: 20150729
  57. ALEVIATIN [Concomitant]
     Active Substance: PHENYTOIN SODIUM
     Dates: start: 20150724, end: 20150725
  58. GLIMICRON [Suspect]
     Active Substance: GLICLAZIDE
     Indication: DIABETES MELLITUS
     Route: 048
     Dates: start: 20040206, end: 20131220
  59. BRONUCK [Concomitant]
     Active Substance: BROMFENAC SODIUM
     Route: 047
     Dates: start: 20120214, end: 20131201
  60. ACTIT [Concomitant]
     Dates: start: 20131204, end: 20131204
  61. PURSENNID [Concomitant]
     Active Substance: SENNOSIDES A AND B
     Route: 048
     Dates: start: 20131206, end: 20131210
  62. SULBACILLIN [Concomitant]
     Active Substance: AMPICILLIN SODIUM\SULBACTAM SODIUM
     Dates: start: 20140202, end: 20140202
  63. SOLYUGEN F [Concomitant]
     Dates: start: 20140203, end: 20140203
  64. CEFMETAZOLE SODIUM [Concomitant]
     Active Substance: CEFMETAZOLE SODIUM
     Dates: start: 20140203, end: 20140206
  65. SOLDEM 3A [Concomitant]
     Active Substance: CARBOHYDRATES\POTASSIUM CHLORIDE\SODIUM CHLORIDE\SODIUM LACTATE
     Dates: start: 20140205, end: 20140205
  66. BOSMIN [Concomitant]
     Active Substance: EPINEPHRINE
     Dates: start: 20150724, end: 20150724
  67. SERENACE [Concomitant]
     Active Substance: HALOPERIDOL
     Route: 065
     Dates: start: 20150724, end: 20150724
  68. GLYCEOL [Concomitant]
     Active Substance: GLYCERIN
     Dates: start: 20131203, end: 20131203
  69. RADICUT [Concomitant]
     Active Substance: EDARAVONE
     Route: 041
     Dates: start: 20131201, end: 20131201
  70. ACTIT [Concomitant]
     Dates: start: 20150726, end: 20150727
  71. SOLDEM 3A [Concomitant]
     Active Substance: CARBOHYDRATES\POTASSIUM CHLORIDE\SODIUM CHLORIDE\SODIUM LACTATE
     Dates: start: 20140202, end: 20140202
  72. AMLODIPINE [Concomitant]
     Active Substance: AMLODIPINE BESYLATE
  73. ENSURE LIQUID [Concomitant]
     Dates: start: 20131227, end: 20131227
  74. DEPAKENE [Concomitant]
     Active Substance: VALPROIC ACID
     Route: 048
     Dates: start: 20150730
  75. CRESTOR [Suspect]
     Active Substance: ROSUVASTATIN CALCIUM
     Indication: HYPERCHOLESTEROLAEMIA
     Route: 048
     Dates: start: 20120803
  76. ALOSITOL [Suspect]
     Active Substance: ALLOPURINOL
     Route: 048
     Dates: start: 20101217, end: 20131220
  77. SAYMOTIN [Suspect]
     Active Substance: KALLIDINOGENASE
     Indication: HYPERTENSION
     Route: 065
  78. REBAMIPIDE [Suspect]
     Active Substance: REBAMIPIDE
     Route: 048
     Dates: start: 20140130
  79. TRAZENTA [Suspect]
     Active Substance: LINAGLIPTIN
     Indication: DIABETES MELLITUS
     Route: 065
     Dates: start: 20131227
  80. SEPAMIT [Concomitant]
     Indication: HYPERTENSION
     Dates: start: 20131201, end: 20131203
  81. SULBACILLIN [Concomitant]
     Active Substance: AMPICILLIN SODIUM\SULBACTAM SODIUM
     Dates: start: 20150727, end: 20150727
  82. LACTEC [Concomitant]
     Active Substance: CALCIUM CHLORIDE ANHYDROUS\POTASSIUM CHLORIDE\SODIUM CHLORIDE\SODIUM LACTATE
     Dates: start: 20140203, end: 20140203
  83. PETROLATUM SALICYLATE [Concomitant]
     Route: 062
     Dates: start: 20140106, end: 201402
  84. SOLYUGEN G [Concomitant]
     Dates: start: 20140204, end: 20140206

REACTIONS (5)
  - Nasopharyngitis [Recovered/Resolved]
  - Seizure [Recovering/Resolving]
  - Myalgia [Recovered/Resolved]
  - Appendicitis [Recovered/Resolved]
  - Cerebral infarction [Recovered/Resolved with Sequelae]

NARRATIVE: CASE EVENT DATE: 20121113
